FAERS Safety Report 15920695 (Version 1)
Quarter: 2019Q1

REPORT INFORMATION
  Report Type: Spontaneous
  Country: SA (occurrence: SA)
  Receive Date: 20190205
  Receipt Date: 20190205
  Transmission Date: 20190417
  Serious: Yes (Death, Hospitalization, Other)
  Sender: FDA-Public Use
  Company Number: SA-PFIZER INC-2018215407

PATIENT
  Age: 3 Month
  Sex: Female

DRUGS (14)
  1. AMIKACIN. [Suspect]
     Active Substance: AMIKACIN
     Indication: PNEUMONIA
     Dosage: UNK
     Dates: start: 2001
  2. AMIKACIN. [Suspect]
     Active Substance: AMIKACIN
     Indication: KLEBSIELLA INFECTION
  3. VANCOMYCIN HCL [Suspect]
     Active Substance: VANCOMYCIN HYDROCHLORIDE
     Indication: FEBRILE INFECTION
  4. VINCRISTINE [Concomitant]
     Active Substance: VINCRISTINE
     Indication: ACUTE LYMPHOCYTIC LEUKAEMIA
     Dosage: 1.5 MG/M2, CYCLIC (DAYS 0, 7, 14, 21)
     Dates: start: 200101
  5. VANCOMYCIN HCL [Suspect]
     Active Substance: VANCOMYCIN HYDROCHLORIDE
     Indication: PNEUMONIA
     Dosage: UNK
     Dates: start: 2001
  6. CEFTAZIDIME. [Suspect]
     Active Substance: CEFTAZIDIME
     Indication: FEBRILE INFECTION
  7. IMIPENEM [Suspect]
     Active Substance: IMIPENEM
     Indication: PNEUMONIA
     Dosage: UNK
     Dates: start: 2001
  8. IMIPENEM [Suspect]
     Active Substance: IMIPENEM
     Indication: KLEBSIELLA INFECTION
  9. ASPARAGINASE [Concomitant]
     Active Substance: ASPARAGINASE
     Indication: ACUTE LYMPHOCYTIC LEUKAEMIA
     Dosage: UNK, (6000 U/M2) (9 DOSES)
     Dates: start: 200101
  10. GRANULOCYTE COLONY STIMULATING FACTOR [Concomitant]
     Active Substance: GRANULOCYTE COLONY-STIMULATING FACTOR NOS
     Dosage: UNK
     Dates: start: 2001
  11. CEFTAZIDIME. [Suspect]
     Active Substance: CEFTAZIDIME
     Indication: PNEUMONIA
     Dosage: UNK
     Dates: start: 2001
  12. AMIKACIN. [Suspect]
     Active Substance: AMIKACIN
     Indication: FEBRILE INFECTION
     Dosage: UNK
  13. DAUNORUBICIN [Concomitant]
     Active Substance: DAUNORUBICIN
     Indication: ACUTE LYMPHOCYTIC LEUKAEMIA
     Dosage: 22.5 MG/M2, CYCLIC (DAYS 14, 15)
     Dates: start: 200101
  14. DEXAMETHASONE. [Concomitant]
     Active Substance: DEXAMETHASONE
     Indication: ACUTE LYMPHOCYTIC LEUKAEMIA
     Dosage: 6.0 MG/M2, CYCLIC (DAYS 0-28)
     Dates: start: 200101

REACTIONS (2)
  - Drug ineffective [Fatal]
  - Stenotrophomonas infection [Fatal]

NARRATIVE: CASE EVENT DATE: 2001
